FAERS Safety Report 8831897 (Version 2)
Quarter: 2013Q1

REPORT INFORMATION
  Report Type: Spontaneous
  Country: US (occurrence: US)
  Receive Date: 20121009
  Receipt Date: 20130123
  Transmission Date: 20140127
  Serious: Yes (Other)
  Sender: FDA-Public Use
  Company Number: US-BAYER-2012-088752

PATIENT
  Age: 44 Year
  Sex: Female
  Weight: 64.4 kg

DRUGS (1)
  1. MIRENA [Suspect]
     Indication: CONTRACEPTION
     Dosage: 20 MCG/24HR, CONT
     Route: 015
     Dates: start: 20111212, end: 20120823

REACTIONS (24)
  - Abdominal pain [Recovering/Resolving]
  - Sensation of heaviness [Recovering/Resolving]
  - Pelvic pain [Recovering/Resolving]
  - Uterine cervical pain [Recovering/Resolving]
  - Vulvovaginal pain [Recovering/Resolving]
  - Uterine pain [Recovering/Resolving]
  - Vaginal haemorrhage [Recovering/Resolving]
  - Ovarian cyst [Recovering/Resolving]
  - Breast pain [Recovering/Resolving]
  - Pollakiuria [Recovering/Resolving]
  - Acne [Recovering/Resolving]
  - Back pain [Recovering/Resolving]
  - Arthralgia [Recovering/Resolving]
  - Limb discomfort [Recovering/Resolving]
  - Depression [Recovering/Resolving]
  - Fatigue [Recovering/Resolving]
  - Malaise [Recovering/Resolving]
  - Asthenia [Recovering/Resolving]
  - Abdominal distension [Recovering/Resolving]
  - Weight increased [Recovering/Resolving]
  - Confusional state [Recovering/Resolving]
  - Feeling abnormal [Recovering/Resolving]
  - Libido decreased [Recovering/Resolving]
  - Hypomenorrhoea [None]
